FAERS Safety Report 19786292 (Version 2)
Quarter: 2021Q4

REPORT INFORMATION
  Report Type: Report from Study
  Country: US (occurrence: US)
  Receive Date: 20210903
  Receipt Date: 20211021
  Transmission Date: 20220303
  Serious: Yes (Hospitalization, Other)
  Sender: FDA-Public Use
  Company Number: US-TG THERAPEUTICS INC.-UTX-VN207-202001458

PATIENT
  Age: 64 Year
  Sex: Female
  Weight: 85.26 kg

DRUGS (8)
  1. UBLITUXIMAB [Suspect]
     Active Substance: UBLITUXIMAB
     Indication: Chronic lymphocytic leukaemia
     Dosage: 150 MG, UNK
     Route: 042
     Dates: start: 20200129, end: 20200129
  2. UBLITUXIMAB [Suspect]
     Active Substance: UBLITUXIMAB
     Dosage: UNK
     Dates: start: 20200211
  3. UMBRALISIB [Suspect]
     Active Substance: UMBRALISIB
     Indication: Chronic lymphocytic leukaemia
     Dosage: 800 MILLIGRAM
     Route: 048
     Dates: start: 20200129, end: 20200130
  4. UMBRALISIB [Suspect]
     Active Substance: UMBRALISIB
     Dosage: UNK
     Dates: start: 20200211
  5. ALLOPURINOL [Concomitant]
     Active Substance: ALLOPURINOL
     Indication: Prophylaxis
     Dosage: 300 MG, QD
     Route: 048
     Dates: start: 20200106, end: 20200225
  6. ALLOPURINOL [Concomitant]
     Active Substance: ALLOPURINOL
     Indication: Prophylaxis
  7. SEVELAMER [Concomitant]
     Active Substance: SEVELAMER
     Indication: Tumour lysis syndrome
     Dosage: 800 MILLIGRAM, TID
     Route: 048
     Dates: start: 20200130, end: 20200205
  8. RASBURICASE [Concomitant]
     Active Substance: RASBURICASE
     Indication: Tumour lysis syndrome
     Dosage: 3 MILLIGRAM ONCE
     Route: 042
     Dates: start: 20200130, end: 20200130

REACTIONS (1)
  - Tumour lysis syndrome [Recovered/Resolved]

NARRATIVE: CASE EVENT DATE: 20200129
